FAERS Safety Report 7232556-8 (Version None)
Quarter: 2011Q1

REPORT INFORMATION
  Report Type: 
  Country: None (occurrence: None)
  Receive Date: 20110106
  Receipt Date: 20101227
  Transmission Date: 20110831
  Serious: Yes (Other)
  Sender: FDA-Public Use
  Company Number: DSA_44609_2011

PATIENT
  Sex: Female

DRUGS (3)
  1. DULOXETINE [Concomitant]
  2. BUPROPION HCL [Suspect]
     Indication: BIPOLAR DISORDER
     Dosage: (DF)
  3. BUPROPION HCL [Suspect]
     Indication: SMOKING CESSATION THERAPY
     Dosage: (DF)

REACTIONS (5)
  - SUICIDAL IDEATION [None]
  - ACTIVITIES OF DAILY LIVING IMPAIRED [None]
  - DRUG INEFFECTIVE [None]
  - PRODUCT SUBSTITUTION ISSUE [None]
  - IMPAIRED WORK ABILITY [None]
